FAERS Safety Report 8027149-9 (Version None)
Quarter: 2012Q1

REPORT INFORMATION
  Report Type: 
  Country: None (occurrence: None)
  Receive Date: 20120106
  Receipt Date: 20120104
  Transmission Date: 20120608
  Serious: Yes (Death)
  Sender: FDA-Public Use
  Company Number: PHEH2012US000545

PATIENT
  Sex: Female

DRUGS (7)
  1. CARAFATE [Concomitant]
  2. SENOKOT [Concomitant]
  3. MORPHINE SULFATE [Concomitant]
  4. ALPRAZOLAM [Concomitant]
  5. AFINITOR [Suspect]
     Dosage: 5 MG, DAILY
     Route: 048
  6. LIBRAX [Concomitant]
  7. CREON [Concomitant]

REACTIONS (1)
  - DEATH [None]
